FAERS Safety Report 5025890-3 (Version None)
Quarter: 2006Q2

REPORT INFORMATION
  Report Type: 
  Country: None (occurrence: None)
  Receive Date: 20060608
  Receipt Date: 20060608
  Transmission Date: 20061013
  Serious: Yes (Other)
  Sender: FDA-Public Use
  Company Number: None

PATIENT
  Sex: Female
  Weight: 83.9154 kg

DRUGS (1)
  1. NITRO-DUR [Suspect]
     Indication: CORONARY ARTERY DISEASE
     Dosage: 8 AM TO 8 PM

REACTIONS (2)
  - APPLICATION SITE OEDEMA [None]
  - OEDEMA PERIPHERAL [None]
